FAERS Safety Report 24444097 (Version 2)
Quarter: 2024Q4

REPORT INFORMATION
  Report Type: Report from Study
  Country: US (occurrence: US)
  Receive Date: 20241016
  Receipt Date: 20241017
  Transmission Date: 20250115
  Serious: No
  Sender: ROCHE
  Company Number: US-ROCHE-2671425

PATIENT
  Age: 38 Year
  Sex: Female

DRUGS (6)
  1. RITUXAN [Suspect]
     Active Substance: RITUXIMAB
     Indication: Systemic lupus erythematosus
     Dosage: FOR 4 WEEKS, DATE OF SERVICE: 14/AUG/2019, 21/AUG/2019, 28/AUG/2019, 04/SEP/2019, 17/AUG/2019, 24/AU
     Route: 065
  2. RITUXAN [Suspect]
     Active Substance: RITUXIMAB
     Indication: Fibromyalgia
     Dosage: DATE OF SERVICE: 24/AUG/2020
     Route: 065
  3. RITUXAN [Suspect]
     Active Substance: RITUXIMAB
     Indication: Essential thrombocythaemia
     Dosage: DATE OF SERVICE: 13/JUN/2022, 06/JUN/2022, 20/FEB/2023, 21/FEB/2023, 06/MAR/2023, 29/AUG/2023, 05/SE
     Route: 065
  4. RITUXAN [Suspect]
     Active Substance: RITUXIMAB
     Indication: Evans syndrome
     Dosage: DATE OF SERVICE 04/MAR/2023
     Route: 065
  5. RITUXAN [Suspect]
     Active Substance: RITUXIMAB
     Indication: Soft tissue disorder
  6. CELLCEPT [Suspect]
     Active Substance: MYCOPHENOLATE MOFETIL
     Indication: Product used for unknown indication
     Route: 065

REACTIONS (2)
  - Off label use [Unknown]
  - Drug hypersensitivity [Unknown]
